FAERS Safety Report 17766129 (Version 3)
Quarter: 2020Q2

REPORT INFORMATION
  Report Type: Spontaneous
  Country: CH (occurrence: CH)
  Receive Date: 20200511
  Receipt Date: 20200515
  Transmission Date: 20200714
  Serious: Yes (Other)
  Sender: FDA-Public Use
  Company Number: CH-PFIZER INC-2020184533

PATIENT
  Sex: Male

DRUGS (9)
  1. AZATHIOPRIN [Concomitant]
     Active Substance: AZATHIOPRINE
     Indication: ENCAPSULATING PERITONEAL SCLEROSIS
     Dosage: UNK
     Route: 065
     Dates: start: 2016
  2. ENDOXAN [CYCLOPHOSPHAMIDE] [Concomitant]
     Active Substance: CYCLOPHOSPHAMIDE
     Indication: ENCAPSULATING PERITONEAL SCLEROSIS
     Dosage: UNK
     Route: 065
     Dates: start: 201901, end: 201902
  3. REMICADE [Concomitant]
     Active Substance: INFLIXIMAB
     Indication: ENCAPSULATING PERITONEAL SCLEROSIS
     Dosage: BODY WEIGHT (5 MG/KG,1 IN 6 WK)
     Route: 042
     Dates: start: 20200401
  4. TAMOXIFEN CITRATE. [Suspect]
     Active Substance: TAMOXIFEN CITRATE
     Indication: ENCAPSULATING PERITONEAL SCLEROSIS
     Dosage: UNK
     Route: 065
     Dates: start: 2015
  5. METHOTREXATE SODIUM. [Suspect]
     Active Substance: METHOTREXATE SODIUM
     Indication: ENCAPSULATING PERITONEAL SCLEROSIS
     Dosage: UNK
     Route: 065
  6. REMICADE [Concomitant]
     Active Substance: INFLIXIMAB
     Dosage: UNK
  7. PREDNISON [Concomitant]
     Active Substance: PREDNISONE
     Dosage: 5 MG, 1X/DAY
     Route: 065
  8. PREDNISON [Concomitant]
     Active Substance: PREDNISONE
     Indication: ENCAPSULATING PERITONEAL SCLEROSIS
     Dosage: 10-15 MG (1 D)
     Route: 065
  9. MYCOPHENOLATE MOFETIL. [Concomitant]
     Active Substance: MYCOPHENOLATE MOFETIL
     Indication: ENCAPSULATING PERITONEAL SCLEROSIS
     Dosage: 3 G, 1X/DAY
     Route: 065
     Dates: start: 2017, end: 2019

REACTIONS (6)
  - Loss of personal independence in daily activities [Not Recovered/Not Resolved]
  - Drug ineffective for unapproved indication [Unknown]
  - Off label use [Unknown]
  - Polyarthritis [Not Recovered/Not Resolved]
  - Product use in unapproved indication [Unknown]
  - Inflammation [Not Recovered/Not Resolved]

NARRATIVE: CASE EVENT DATE: 2020
